FAERS Safety Report 6032091-9 (Version None)
Quarter: 2009Q1

REPORT INFORMATION
  Report Type: 
  Country: None (occurrence: None)
  Receive Date: 20090108
  Receipt Date: 20081229
  Transmission Date: 20090719
  Serious: Yes (Other)
  Sender: FDA-Public Use
  Company Number: US-PFIZER INC-2008100993

PATIENT
  Sex: Male
  Weight: 92.971 kg

DRUGS (32)
  1. LYRICA [Suspect]
     Indication: ANALGESIA
  2. NEURONTIN [Concomitant]
     Dosage: UNK
  3. CYMBALTA [Concomitant]
     Indication: DEPRESSION
     Dosage: UNK
     Dates: start: 20071017
  4. CALTRATE [Concomitant]
     Dosage: UNK
     Dates: start: 20081024
  5. LOPERAMIDE [Concomitant]
     Dosage: UNK
     Dates: start: 20081024
  6. AMBIEN [Concomitant]
     Dosage: UNK
     Dates: start: 20081024
  7. VIAGRA [Concomitant]
     Dosage: UNK
     Dates: start: 20081024
  8. DESVENLAFAXINE [Concomitant]
     Dosage: UNK
     Dates: start: 20081024
  9. HYDROCHLOROTHIAZIDE [Concomitant]
     Dosage: UNK
     Dates: start: 20081024
  10. SPIRIVA [Concomitant]
     Dosage: UNK
     Dates: start: 20081024
  11. NASONEX [Concomitant]
     Dosage: UNK
     Dates: start: 20081024
  12. POTASSIUM [Concomitant]
     Dosage: UNK
     Dates: start: 20081024
  13. TAMSULOSIN [Concomitant]
     Dosage: UNK
     Dates: start: 20080731
  14. VITAMIN D [Concomitant]
     Dosage: UNK
     Dates: start: 20080731
  15. TRAMADOL HYDROCHLORIDE [Concomitant]
     Dosage: UNK
     Dates: start: 20071017
  16. TYLENOL (CAPLET) [Concomitant]
     Dosage: UNK
     Dates: start: 20070824
  17. TRAZODONE [Concomitant]
     Dosage: UNK
     Dates: start: 20070824
  18. NEXIUM [Concomitant]
     Dosage: UNK
     Dates: start: 20070824
  19. MELATONIN [Concomitant]
     Dosage: UNK
     Dates: start: 20070824
  20. LISINOPRIL [Concomitant]
     Dosage: UNK
     Dates: start: 20070824
  21. FUROSEMIDE [Concomitant]
     Dosage: UNK
     Dates: start: 20070824
  22. FOSAMAX [Concomitant]
     Dosage: UNK
     Dates: start: 20070824
  23. CENTRUM [Concomitant]
     Dosage: UNK
     Dates: start: 20070824
  24. CARDURA [Concomitant]
     Dosage: UNK
     Dates: start: 20070824
  25. ALLEGRA [Concomitant]
     Dosage: UNK
     Dates: start: 20070824
  26. ADVAIR DISKUS 250/50 [Concomitant]
     Dosage: UNK
     Dates: start: 20070824
  27. PERCOCET [Concomitant]
     Dosage: UNK
     Dates: start: 20080918
  28. NORCO [Concomitant]
     Dosage: UNK
     Dates: start: 20080731
  29. NORCO [Concomitant]
     Dosage: UNK
     Dates: start: 20080909
  30. VICODIN [Concomitant]
     Dosage: UNK
     Dates: start: 20080521
  31. LIDODERM [Concomitant]
     Dosage: UNK
     Dates: start: 20080212
  32. LIDODERM [Concomitant]
     Dosage: UNK
     Dates: start: 20080214

REACTIONS (8)
  - ANXIETY [None]
  - BACK PAIN [None]
  - BLOOD PRESSURE INCREASED [None]
  - DYSPNOEA [None]
  - NECK PAIN [None]
  - SWELLING FACE [None]
  - TACHYCARDIA [None]
  - WEIGHT INCREASED [None]
